FAERS Safety Report 5035938-8 (Version None)
Quarter: 2006Q2

REPORT INFORMATION
  Report Type: 
  Country: None (occurrence: None)
  Receive Date: 20060627
  Receipt Date: 20060619
  Transmission Date: 20061013
  Serious: Yes (Hospitalization)
  Sender: FDA-Public Use
  Company Number: US-ABBOTT-06P-163-0336328-00

PATIENT
  Sex: Female

DRUGS (7)
  1. HUMIRA [Suspect]
     Indication: PSORIATIC ARTHROPATHY
     Route: 058
     Dates: start: 20060201
  2. SULTOPRIDE [Concomitant]
     Indication: BLOOD PRESSURE INCREASED
     Route: 048
  3. VALSARTAN [Concomitant]
     Indication: BLOOD PRESSURE INCREASED
     Route: 048
  4. FOLIC ACID [Concomitant]
     Indication: VITAMIN SUPPLEMENTATION
     Route: 048
  5. METHOTREXATE [Concomitant]
     Indication: PSORIATIC ARTHROPATHY
     Route: 048
  6. LUNESTA [Concomitant]
     Indication: INSOMNIA
     Route: 048
     Dates: start: 20060201
  7. LEXAPRO [Concomitant]
     Indication: DEPRESSION
     Route: 048
     Dates: start: 20060201

REACTIONS (1)
  - ERYTHRODERMIC PSORIASIS [None]
